FAERS Safety Report 25134333 (Version 1)
Quarter: 2025Q1

REPORT INFORMATION
  Report Type: Spontaneous
  Country: GB (occurrence: GB)
  Receive Date: 20250328
  Receipt Date: 20250328
  Transmission Date: 20250409
  Serious: Yes (Other)
  Sender: ALEXION PHARMACEUTICALS
  Company Number: XI-AstraZeneca-CH-00798381A

PATIENT
  Age: 71 Year
  Weight: 89 kg

DRUGS (13)
  1. DAPAGLIFLOZIN [Suspect]
     Active Substance: DAPAGLIFLOZIN
     Indication: Cardiac failure chronic
     Dosage: 10 MILLIGRAM, QD
  2. BISOPROLOL [Concomitant]
     Active Substance: BISOPROLOL
     Indication: Cardiac failure chronic
     Dosage: 10 UNK, QD
  3. SPIRONOLACTONE [Concomitant]
     Active Substance: SPIRONOLACTONE
     Indication: Cardiac failure chronic
     Dosage: 25 UNK, QD
  4. FUROSEMIDE [Concomitant]
     Active Substance: FUROSEMIDE
     Indication: Cardiac failure chronic
     Dosage: 40 UNK, BID
  5. IVABRADINE [Concomitant]
     Active Substance: IVABRADINE
     Indication: Cardiac failure chronic
  6. CLOPIDOGREL [Concomitant]
     Active Substance: CLOPIDOGREL BISULFATE
     Indication: Retinal artery occlusion
     Dosage: 75 MILLIGRAM, QD
  7. VENLAFAXINE [Concomitant]
     Active Substance: VENLAFAXINE HYDROCHLORIDE
     Indication: Depression
     Dosage: 225 MILLIGRAM, QD
  8. ENTRESTO [Concomitant]
     Active Substance: SACUBITRIL\VALSARTAN
     Indication: Cardiac failure chronic
     Dosage: 100 MILLIGRAM, QD
  9. LANSOPRAZOLE [Concomitant]
     Active Substance: LANSOPRAZOLE
     Indication: Gastrooesophageal reflux disease
     Dosage: 20 MILLIGRAM, QD
  10. AMOXICILLIN [Concomitant]
     Active Substance: AMOXICILLIN
     Route: 065
  11. AMOXICILLIN [Concomitant]
     Active Substance: AMOXICILLIN
  12. FERRITIN [Concomitant]
     Active Substance: FERRITIN
     Route: 065
  13. FERRITIN [Concomitant]
     Active Substance: FERRITIN

REACTIONS (4)
  - Prostatitis [Recovered/Resolved]
  - Cardiac failure [Unknown]
  - Product use issue [Unknown]
  - Dilated cardiomyopathy [Unknown]
